FAERS Safety Report 5925192-4 (Version None)
Quarter: 2008Q3

REPORT INFORMATION
  Report Type: 
  Country: None (occurrence: None)
  Receive Date: 20080909
  Receipt Date: 20070830
  Transmission Date: 20090109
  Serious: Yes (Hospitalization)
  Sender: FDA-Public Use
  Company Number: 163-20785-07081870

PATIENT
  Age: 52 Year
  Sex: Male

DRUGS (1)
  1. THALOMID [Suspect]
     Indication: HIV INFECTION
     Dosage: 50 MG, DAILY, ORAL
     Route: 048
     Dates: start: 20070801

REACTIONS (2)
  - HIV INFECTION [None]
  - MENINGITIS [None]
